FAERS Safety Report 19591144 (Version 1)
Quarter: 2021Q3

REPORT INFORMATION
  Report Type: Report from Study
  Country: US (occurrence: US)
  Receive Date: 20210721
  Receipt Date: 20210721
  Transmission Date: 20211014
  Serious: Yes (Hospitalization, Other)
  Sender: FDA-Public Use
  Company Number: US-TAKEDA-2021TUS043690

PATIENT
  Age: 75 Year
  Sex: Male

DRUGS (14)
  1. TEDUGLUTIDE [Suspect]
     Active Substance: TEDUGLUTIDE
     Dosage: 4.2 MILLIGRAM (0.05MG/KG), 2/WEEK
     Route: 065
     Dates: start: 20181209, end: 201902
  2. TEDUGLUTIDE [Suspect]
     Active Substance: TEDUGLUTIDE
     Dosage: 2.1 MILLIGRAM (0.05MG/KG), 2/WEEK
     Route: 065
     Dates: start: 201903, end: 20190320
  3. TEDUGLUTIDE [Suspect]
     Active Substance: TEDUGLUTIDE
     Dosage: 4.2 MILLIGRAM (0.05MG/KG), 2/WEEK
     Route: 065
     Dates: start: 20181209, end: 201902
  4. TEDUGLUTIDE [Suspect]
     Active Substance: TEDUGLUTIDE
     Dosage: 2.1 MILLIGRAM (0.05MG/KG), 2/WEEK
     Route: 065
     Dates: start: 201903, end: 20190320
  5. ERGOCALCIFEROL. [Concomitant]
     Active Substance: ERGOCALCIFEROL
     Indication: VITAMIN D DEFICIENCY
     Dosage: 50000 UNK, 2/WEEK
     Route: 048
     Dates: start: 20171115
  6. TEDUGLUTIDE [Suspect]
     Active Substance: TEDUGLUTIDE
     Indication: SHORT-BOWEL SYNDROME
     Dosage: 4.2 MILLIGRAM (0.05MG/KG), QD
     Route: 065
     Dates: start: 20180921, end: 201810
  7. TEDUGLUTIDE [Suspect]
     Active Substance: TEDUGLUTIDE
     Dosage: 2.1 MILLIGRAM (0.05MG/KG), 2/WEEK
     Route: 065
     Dates: start: 201903, end: 20190320
  8. TEDUGLUTIDE [Suspect]
     Active Substance: TEDUGLUTIDE
     Dosage: 2.1 MILLIGRAM (0.05MG/KG), 2/WEEK
     Route: 065
     Dates: start: 201903, end: 20190320
  9. CYANOCOBALAMIN. [Concomitant]
     Active Substance: CYANOCOBALAMIN
     Indication: VITAMIN B12 DEFICIENCY
     Dosage: 1000 MICROGRAM, MONTHLY
     Route: 030
     Dates: start: 20170705
  10. TEDUGLUTIDE [Suspect]
     Active Substance: TEDUGLUTIDE
     Dosage: 4.2 MILLIGRAM (0.05MG/KG), 2/WEEK
     Route: 065
     Dates: start: 20181209, end: 201902
  11. TEDUGLUTIDE [Suspect]
     Active Substance: TEDUGLUTIDE
     Dosage: 4.2 MILLIGRAM (0.05MG/KG), 2/WEEK
     Route: 065
     Dates: start: 20181209, end: 201902
  12. TEDUGLUTIDE [Suspect]
     Active Substance: TEDUGLUTIDE
     Indication: SHORT-BOWEL SYNDROME
     Dosage: 4.2 MILLIGRAM (0.05MG/KG), QD
     Route: 065
     Dates: start: 20180921, end: 201810
  13. TEDUGLUTIDE [Suspect]
     Active Substance: TEDUGLUTIDE
     Indication: SHORT-BOWEL SYNDROME
     Dosage: 4.2 MILLIGRAM (0.05MG/KG), QD
     Route: 065
     Dates: start: 20180921, end: 201810
  14. TEDUGLUTIDE [Suspect]
     Active Substance: TEDUGLUTIDE
     Indication: SHORT-BOWEL SYNDROME
     Dosage: 4.2 MILLIGRAM (0.05MG/KG), QD
     Route: 065
     Dates: start: 20180921, end: 201810

REACTIONS (1)
  - Bacteraemia [Recovered/Resolved]

NARRATIVE: CASE EVENT DATE: 20200716
